FAERS Safety Report 7212084-6 (Version None)
Quarter: 2010Q4

REPORT INFORMATION
  Report Type: 
  Country: None (occurrence: None)
  Receive Date: 20101228
  Receipt Date: 20101216
  Transmission Date: 20110411
  Serious: Yes (Hospitalization)
  Sender: FDA-Public Use
  Company Number: 2010S1000407

PATIENT
  Age: 73 Year
  Sex: Female

DRUGS (4)
  1. DARVOCET-N 100 [Suspect]
     Indication: BACK PAIN
     Dosage: 20 MG; QD; PO
     Route: 048
     Dates: start: 19780101, end: 20101214
  2. DARVON [Suspect]
     Indication: BACK PAIN
     Dosage: PRN; PO
     Route: 048
     Dates: start: 19560101, end: 19780101
  3. PROTONIX [Concomitant]
  4. SINGULAIR [Concomitant]

REACTIONS (3)
  - ATRIOVENTRICULAR BLOCK COMPLETE [None]
  - DRUG HYPERSENSITIVITY [None]
  - INSOMNIA [None]
